FAERS Safety Report 4404776-9 (Version None)
Quarter: 2004Q3

REPORT INFORMATION
  Report Type: 
  Country: None (occurrence: None)
  Receive Date: 20040720
  Receipt Date: 20040629
  Transmission Date: 20050211
  Serious: Yes (Hospitalization)
  Sender: FDA-Public Use
  Company Number: WAES 0403USA02322

PATIENT
  Age: 34 Year
  Sex: Female

DRUGS (24)
  1. CRIXIVAN [Suspect]
     Indication: HIV INFECTION
     Dosage: SEE IMAGE
     Route: 048
     Dates: start: 19980831, end: 19980909
  2. CRIXIVAN [Suspect]
     Indication: HIV INFECTION
     Dosage: SEE IMAGE
     Route: 048
     Dates: start: 20000310, end: 20001027
  3. CAP STOCRIN (EFAVIRENZ) [Suspect]
     Indication: HIV INFECTION
     Dosage: 600 MG/DAILY
     Route: 048
     Dates: start: 20000310, end: 20001027
  4. CAP STOCRIN (EFAVIRENZ) [Suspect]
     Indication: HIV INFECTION
     Dosage: 600 MG/DAILY
     Route: 048
     Dates: start: 20010130
  5. CAP RITONAVIR [Suspect]
     Indication: HIV INFECTION
     Dosage: 400 MG/DASILY
     Route: 048
     Dates: start: 20000310, end: 20001027
  6. TAB ABACAVIR SULFATE [Suspect]
     Indication: HIV INFECTION
     Dosage: 600 MG/DAILY
     Route: 048
     Dates: start: 20010130
  7. CAP LOPINAVIR (+) RITONAVIR [Suspect]
     Indication: HIV INFECTION
     Dosage: 56 CAPSULES/DAILY
     Dates: start: 20010130
  8. TAB CLARITHROMYCIN [Suspect]
     Indication: HIV INFECTION
     Dosage: 800 MG/DAILY
     Route: 048
     Dates: start: 20001028
  9. ETHAMBUTOL HCL [Suspect]
     Indication: HIV INFECTION
     Route: 048
     Dates: start: 20001028, end: 20011130
  10. SULFAMETHOXAZOLE + TRIMETHOPRIM [Suspect]
     Indication: HIV INFECTION
     Dosage: 480 MG/DAILY
     Route: 048
     Dates: start: 20010113, end: 20020319
  11. DENOSINE [Concomitant]
  12. FOSCAVIR [Concomitant]
  13. LACTEC D [Concomitant]
  14. SOLITA T-3 [Concomitant]
  15. CIPROFLOXACIN HCL [Concomitant]
  16. DEXTROSE [Concomitant]
  17. HYDROCORTISONE [Concomitant]
  18. HYDROCORTISONE SODIUM PHOSPHATE [Concomitant]
  19. LAMIVUDINE [Concomitant]
  20. MORPHINE [Concomitant]
  21. PREDNISOLONE [Concomitant]
  22. RIFAMPIN [Concomitant]
  23. ROXITHROMYCIN [Concomitant]
  24. ZIDOVUDINE [Concomitant]

REACTIONS (13)
  - BLOOD ALKALINE PHOSPHATASE INCREASED [None]
  - BLOOD CHLORIDE DECREASED [None]
  - BLOOD SODIUM DECREASED [None]
  - CALCULUS URINARY [None]
  - CREATININE RENAL CLEARANCE DECREASED [None]
  - CYTOMEGALOVIRUS INFECTION [None]
  - DIZZINESS [None]
  - ELECTROLYTE IMBALANCE [None]
  - GAMMA-GLUTAMYLTRANSFERASE INCREASED [None]
  - HIV WASTING SYNDROME [None]
  - HYPERLIPIDAEMIA [None]
  - NAUSEA [None]
  - VOMITING [None]
